FAERS Safety Report 8345755-9 (Version None)
Quarter: 2012Q2

REPORT INFORMATION
  Report Type: 
  Country: None (occurrence: None)
  Receive Date: 20120508
  Receipt Date: 20120425
  Transmission Date: 20120825
  Serious: Yes (Hospitalization, Other)
  Sender: FDA-Public Use
  Company Number: DE-ELI_LILLY_AND_COMPANY-DE201204008455

PATIENT
  Age: 75 Year
  Sex: Male

DRUGS (1)
  1. FORTEO [Suspect]
     Indication: OSTEOPOROSIS
     Dosage: UNK, QD
     Route: 058
     Dates: start: 20110729

REACTIONS (5)
  - ANGIOPATHY [None]
  - GASTROINTESTINAL CARCINOMA [None]
  - SMALL INTESTINE OPERATION [None]
  - NAUSEA [None]
  - COLON OPERATION [None]
